FAERS Safety Report 14319456 (Version 3)
Quarter: 2018Q1

REPORT INFORMATION
  Report Type: Spontaneous
  Country: IT (occurrence: IT)
  Receive Date: 20171222
  Receipt Date: 20180307
  Transmission Date: 20180509
  Serious: Yes (Hospitalization)
  Sender: FDA-Public Use
  Company Number: IT-TEVA-2017-IT-838494

PATIENT
  Age: 6 Year
  Sex: Female

DRUGS (27)
  1. DELTACORTENE 25 MG COMPRESSE [Concomitant]
     Dates: start: 20161213, end: 20161220
  2. RANITIDINE. [Concomitant]
     Active Substance: RANITIDINE
     Route: 042
     Dates: start: 20161213
  3. LASIX [Concomitant]
     Active Substance: FUROSEMIDE
     Route: 042
     Dates: start: 20161212
  4. SANDIMMUN [Concomitant]
     Active Substance: CYCLOSPORINE
     Dates: start: 20161220
  5. URBASON [Concomitant]
     Active Substance: METHYLPREDNISOLONE
     Route: 042
     Dates: start: 20161220, end: 20161221
  6. ACICLOVIR SODIUM [Concomitant]
     Dates: start: 20161212, end: 20161218
  7. NYSTATIN. [Concomitant]
     Active Substance: NYSTATIN
     Route: 048
     Dates: start: 20161212, end: 20170120
  8. LEDERFOLIN [Concomitant]
     Active Substance: LEUCOVORIN CALCIUM
     Dates: start: 20161224, end: 20161230
  9. URSODEOXYCHOLIC ACID [Concomitant]
     Active Substance: URSODIOL
     Dates: start: 20161212, end: 20170120
  10. TEGRETOL [Concomitant]
     Active Substance: CARBAMAZEPINE
     Dates: start: 20161213, end: 20161218
  11. TRIMETON [Concomitant]
     Active Substance: CHLORPHENIRAMINE MALEATE
     Dates: start: 20161220, end: 20161221
  12. ITRACONAZOLE. [Concomitant]
     Active Substance: ITRACONAZOLE
     Dates: start: 20161212, end: 20161229
  13. EMEND [Concomitant]
     Active Substance: APREPITANT
     Dates: start: 20161214, end: 20161216
  14. DIAMINOCILLINA [Concomitant]
     Active Substance: PENICILLIN G BENZATHINE
     Dates: start: 20161213
  15. HEPARIN [Concomitant]
     Active Substance: HEPARIN SODIUM
     Dates: start: 20161213
  16. CIPROFLOXACIN. [Concomitant]
     Active Substance: CIPROFLOXACIN
     Route: 048
     Dates: start: 20161212, end: 20161229
  17. BACTRIM 80 MG/5 ML + 400 MG/5 ML SOSPENSIONE ORALE [Concomitant]
     Route: 048
  18. ALOXI 500 MICROGRAMS SOFT CAPSULES [Concomitant]
     Dates: start: 20161214, end: 20161217
  19. PERFALGAN [Concomitant]
     Active Substance: ACETAMINOPHEN
     Dates: start: 20161220, end: 20161221
  20. BUSILVEX [Suspect]
     Active Substance: BUSULFAN
     Indication: ALLOGENIC BONE MARROW TRANSPLANTATION THERAPY
     Dosage: 90 MILLIGRAM DAILY;
     Route: 042
     Dates: start: 20161214, end: 20161217
  21. ALKERAN [Suspect]
     Active Substance: MELPHALAN
     Indication: ALLOGENIC BONE MARROW TRANSPLANTATION THERAPY
     Dosage: IN TOTAL
     Route: 042
     Dates: start: 20161220, end: 20161220
  22. ENDOXAN BAXTER [Suspect]
     Active Substance: CYCLOPHOSPHAMIDE
     Indication: ALLOGENIC BONE MARROW TRANSPLANTATION THERAPY
     Dosage: 1420 MILLIGRAM DAILY;
     Route: 042
     Dates: start: 20161218, end: 20161219
  23. PRIVIGEN [Concomitant]
     Active Substance: HUMAN IMMUNOGLOBULIN G
     Dates: start: 20161217, end: 20170109
  24. METHOTREXATE. [Suspect]
     Active Substance: METHOTREXATE
     Indication: ALLOGENIC BONE MARROW TRANSPLANTATION THERAPY
     Route: 042
     Dates: start: 20161223, end: 20161228
  25. RABBIT ANTI-HUMAN THYMOCYTE IMMUNOGLOBULIN [Suspect]
     Active Substance: LAPINE T-LYMPHOCYTE IMMUNE GLOBULIN
     Indication: ALLOGENIC BONE MARROW TRANSPLANTATION THERAPY
     Route: 042
     Dates: start: 20161220, end: 20161221
  26. LASIX [Concomitant]
     Active Substance: FUROSEMIDE
     Route: 048
     Dates: start: 20161212, end: 20161212
  27. ACICLOVIR SODIUM [Concomitant]
     Dates: start: 20161219

REACTIONS (1)
  - Body temperature increased [Recovered/Resolved]

NARRATIVE: CASE EVENT DATE: 20161228
